FAERS Safety Report 5765832-6 (Version None)
Quarter: 2008Q2

REPORT INFORMATION
  Report Type: 
  Country: None (occurrence: None)
  Receive Date: 20080606
  Receipt Date: 20080522
  Transmission Date: 20081010
  Serious: Yes (Hospitalization)
  Sender: FDA-Public Use
  Company Number: 2008AL005820

PATIENT
  Age: 48 Year
  Sex: Male
  Weight: 104.3273 kg

DRUGS (7)
  1. DIGOXIN [Suspect]
     Indication: ATRIAL FIBRILLATION
     Dosage: 0.125MG DAILY PO
     Route: 048
  2. COUMADIN [Concomitant]
  3. AMIODERONE [Concomitant]
  4. METOPROLOL [Concomitant]
  5. LASIX [Concomitant]
  6. SPRINOLACTONE [Concomitant]
  7. LISINOPRIL [Concomitant]

REACTIONS (2)
  - FATIGUE [None]
  - HAEMORRHAGE [None]
